FAERS Safety Report 10046756 (Version 1)
Quarter: 2014Q1

REPORT INFORMATION
  Report Type: Spontaneous
  Country: US (occurrence: US)
  Receive Date: 20140331
  Receipt Date: 20140331
  Transmission Date: 20141002
  Serious: Yes (Other)
  Sender: FDA-Public Use
  Company Number: US-AMGEN-USASP2014021251

PATIENT
  Age: 68 Year
  Sex: Female

DRUGS (4)
  1. PROLIA [Suspect]
     Indication: OSTEOPOROSIS POSTMENOPAUSAL
     Route: 065
  2. LORTAB                             /00607101/ [Concomitant]
     Dosage: 500 MG, UNK
  3. GRALISE [Concomitant]
     Dosage: 600 MG, UNK
  4. MORPHINE SULFATE [Concomitant]
     Dosage: 30 MG, BID

REACTIONS (6)
  - Accident [Unknown]
  - Limb injury [Unknown]
  - Temporomandibular joint syndrome [Unknown]
  - Fatigue [Unknown]
  - Back pain [Unknown]
  - Arthralgia [Unknown]
